FAERS Safety Report 10488462 (Version 1)
Quarter: 2014Q4

REPORT INFORMATION
  Report Type: Spontaneous
  Country: US (occurrence: None)
  Receive Date: 20141001
  Receipt Date: 20141001
  Transmission Date: 20150528
  Serious: No
  Sender: FDA-Public Use
  Company Number: None

PATIENT
  Age: 61 Year
  Sex: Female
  Weight: 107.96 kg

DRUGS (17)
  1. TRAMADOL HCL [Concomitant]
     Active Substance: TRAMADOL HYDROCHLORIDE
  2. STOOL SOFTNER [Concomitant]
  3. CALCIUM CITRATE [Concomitant]
     Active Substance: CALCIUM CITRATE
  4. NITROQUICK [Concomitant]
     Active Substance: NITROGLYCERIN
  5. CYMBALTA [Concomitant]
     Active Substance: DULOXETINE HYDROCHLORIDE
  6. KLOR-CON [Concomitant]
     Active Substance: POTASSIUM CHLORIDE
  7. BAYER LOW DOSE [Concomitant]
     Active Substance: ASPIRIN
  8. GABAPENTIN. [Suspect]
     Active Substance: GABAPENTIN
     Indication: DRUG THERAPY
     Route: 048
     Dates: start: 20130909, end: 20130911
  9. LISINOPRIL. [Concomitant]
     Active Substance: LISINOPRIL
  10. FISH OIL [Concomitant]
     Active Substance: FISH OIL
  11. CRESTOR [Concomitant]
     Active Substance: ROSUVASTATIN CALCIUM
  12. VITAMIN D [Concomitant]
     Active Substance: CHOLECALCIFEROL
  13. OMEPRAZOLE. [Concomitant]
     Active Substance: OMEPRAZOLE
  14. PLAVIX [Concomitant]
     Active Substance: CLOPIDOGREL BISULFATE
  15. METOPROLOL TART [Concomitant]
  16. ISOSORB DIN [Concomitant]
  17. FUROSEMIDE. [Concomitant]
     Active Substance: FUROSEMIDE

REACTIONS (4)
  - Abdominal discomfort [None]
  - Constipation [None]
  - Oropharyngeal pain [None]
  - Pruritus [None]

NARRATIVE: CASE EVENT DATE: 20140909
